FAERS Safety Report 4367974-9 (Version None)
Quarter: 2004Q2

REPORT INFORMATION
  Report Type: 
  Country: None (occurrence: None)
  Receive Date: 20040601
  Receipt Date: 20040514
  Transmission Date: 20050107
  Serious: Yes (Other)
  Sender: FDA-Public Use
  Company Number: CIO04012596

PATIENT
  Age: 66 Year
  Sex: Male
  Weight: 79.4 kg

DRUGS (2)
  1. NYQUIL COLD/FLU DOXYLAMINE (DOXYLAMINE SUCCINATE 6.25 MG, PSEUDOPHEDRI [Suspect]
     Dosage: 1 LIQCAP, 1 DAY FOR 1 DAY, ORAL
     Route: 048
     Dates: start: 20040423, end: 20040423
  2. SYNTHROID (LEVOTHYROXINE SDOIUM) [Concomitant]

REACTIONS (2)
  - HYPERSENSITIVITY [None]
  - LOSS OF CONSCIOUSNESS [None]
